FAERS Safety Report 7575218-X (Version None)
Quarter: 2011Q2

REPORT INFORMATION
  Report Type: 
  Country: None (occurrence: None)
  Receive Date: 20110627
  Receipt Date: 20110622
  Transmission Date: 20111010
  Serious: Yes (Death, Hospitalization)
  Sender: FDA-Public Use
  Company Number: CHPA2011US08368

PATIENT
  Age: 92 Year
  Sex: Female

DRUGS (1)
  1. MAALOX UNKNOWN [Suspect]
     Indication: DYSPEPSIA
     Dosage: UNK, UNK
     Route: 048

REACTIONS (4)
  - FALL [None]
  - INCORRECT DRUG ADMINISTRATION DURATION [None]
  - CERVICAL VERTEBRAL FRACTURE [None]
  - HIP FRACTURE [None]
